FAERS Safety Report 14967220 (Version 1)
Quarter: 2018Q2

REPORT INFORMATION
  Report Type: Report from Study
  Country: KR (occurrence: KR)
  Receive Date: 20180604
  Receipt Date: 20180604
  Transmission Date: 20180711
  Serious: Yes (Death)
  Sender: FDA-Public Use
  Company Number: KR-CHEPLA-C20180226_03

PATIENT
  Age: 9 Year
  Sex: Female

DRUGS (1)
  1. ATRA [Suspect]
     Active Substance: TRETINOIN

REACTIONS (2)
  - Viral sepsis [Fatal]
  - Coxsackie myocarditis [Fatal]
